FAERS Safety Report 6644221-6 (Version None)
Quarter: 2010Q1

REPORT INFORMATION
  Report Type: 
  Country: None (occurrence: None)
  Receive Date: 20100319
  Receipt Date: 20100319
  Transmission Date: 20100710
  Serious: Yes (Other)
  Sender: FDA-Public Use
  Company Number: None

PATIENT
  Sex: Male
  Weight: 97.5234 kg

DRUGS (6)
  1. TRILIPIX [Suspect]
     Indication: HIGH DENSITY LIPOPROTEIN DECREASED
     Dosage: 45MG ~ 2X/WK ORAL
     Route: 048
     Dates: start: 20100225, end: 20100227
  2. TRILIPIX [Suspect]
     Indication: HYPERTENSION
     Dosage: 45MG ~ 2X/WK ORAL
     Route: 048
     Dates: start: 20100225, end: 20100227
  3. SYNTHROID [Concomitant]
  4. ALFALFA [Suspect]
  5. ASPIRIN [Concomitant]
  6. LISINOPRIL [Concomitant]

REACTIONS (1)
  - MUSCULAR WEAKNESS [None]
